FAERS Safety Report 23224176 (Version 2)
Quarter: 2023Q4

REPORT INFORMATION
  Report Type: Spontaneous
  Country: JP (occurrence: JP)
  Receive Date: 20231124
  Receipt Date: 20231221
  Transmission Date: 20240110
  Serious: Yes (Other)
  Sender: FDA-Public Use
  Company Number: JP-NBI-BJ202317782

PATIENT
  Age: 79 Year
  Sex: Male

DRUGS (1)
  1. OFEV [Suspect]
     Active Substance: NINTEDANIB
     Indication: Interstitial lung disease
     Route: 048
     Dates: start: 20230808

REACTIONS (8)
  - Interstitial lung disease [Not Recovered/Not Resolved]
  - Systemic scleroderma [Not Recovered/Not Resolved]
  - Loss of consciousness [Recovered/Resolved]
  - Contusion [Unknown]
  - Eyelid injury [Recovered/Resolved]
  - Post-traumatic pain [Recovered/Resolved]
  - Dyspnoea exertional [Not Recovered/Not Resolved]
  - Dyspnoea exertional [Not Recovered/Not Resolved]

NARRATIVE: CASE EVENT DATE: 20231119
